FAERS Safety Report 21805725 (Version 2)
Quarter: 2023Q1

REPORT INFORMATION
  Report Type: Spontaneous
  Country: US (occurrence: US)
  Receive Date: 20230102
  Receipt Date: 20230118
  Transmission Date: 20230418
  Serious: Yes (Hospitalization)
  Sender: FDA-Public Use
  Company Number: US-drreddys-SPO/USA/22/0158172

PATIENT
  Age: 66 Year
  Sex: Female

DRUGS (15)
  1. LENALIDOMIDE [Suspect]
     Active Substance: LENALIDOMIDE
     Indication: Neutropenia
     Dosage: ON DAYS 1-21 OF EACH 28 DAY CYCLE (3 WEEKS ON, 1 WEEK OFF)
     Route: 048
  2. LENALIDOMIDE [Suspect]
     Active Substance: LENALIDOMIDE
     Dosage: ON DAYS 1-21 OF EACH 28 DAY CYCLE (3 WEEKS ON, 1 WEEK OFF)
     Route: 048
     Dates: start: 20221103
  3. ATORVASTATIN TAB 20MG [Concomitant]
     Indication: Product used for unknown indication
  4. METOPROLOL SUCCINATE [Concomitant]
     Active Substance: METOPROLOL SUCCINATE
     Indication: Product used for unknown indication
  5. ASPIRIN TAB 325MG [Concomitant]
     Indication: Product used for unknown indication
  6. CENTRUM ADUL TAB [Concomitant]
     Indication: Product used for unknown indication
  7. CLINDAMYCIN [Concomitant]
     Active Substance: CLINDAMYCIN
     Indication: Product used for unknown indication
  8. HYDROCODONE- TAB 7.5-325M [Concomitant]
     Indication: Product used for unknown indication
     Dosage: HYDROCODONE- TAB 7.5-325M
  9. JADENU SPRIN PAC 360MG [Concomitant]
     Indication: Product used for unknown indication
  10. LACTOBACILLU TAB [Concomitant]
     Indication: Product used for unknown indication
  11. LEVOTHYROXIN TAB 100MCG [Concomitant]
     Indication: Product used for unknown indication
  12. LORATADINE TAB 10MG [Concomitant]
     Indication: Product used for unknown indication
  13. MAGNESIUM TAB 250MG [Concomitant]
     Indication: Product used for unknown indication
  14. PROTONIX TBE TBE 40MG [Concomitant]
     Indication: Product used for unknown indication
  15. PROVENTIL HF AER 108 [Concomitant]
     Indication: Product used for unknown indication

REACTIONS (5)
  - Blood iron increased [Recovered/Resolved]
  - Constipation [Recovered/Resolved]
  - Diarrhoea [Recovered/Resolved]
  - Product use in unapproved indication [Unknown]
  - Product dose omission issue [Unknown]
